FAERS Safety Report 18999078 (Version 4)
Quarter: 2024Q2

REPORT INFORMATION
  Report Type: Report from Study
  Country: NO (occurrence: NO)
  Receive Date: 20210312
  Receipt Date: 20240425
  Transmission Date: 20240716
  Serious: Yes (Other)
  Sender: FDA-Public Use
  Company Number: NO-BAYER-2021-103777

PATIENT
  Age: 26 Year
  Sex: Female

DRUGS (1)
  1. MIRENA [Suspect]
     Active Substance: LEVONORGESTREL
     Dosage: 20?G/DAY
     Route: 015
     Dates: start: 20200603, end: 20200603

REACTIONS (4)
  - Syncope [Recovered/Resolved]
  - Procedural pain [Recovered/Resolved]
  - Complication of device insertion [None]
  - Device difficult to use [None]

NARRATIVE: CASE EVENT DATE: 20200603
